FAERS Safety Report 7811393-7 (Version None)
Quarter: 2011Q4

REPORT INFORMATION
  Report Type: 
  Country: None (occurrence: None)
  Receive Date: 20111013
  Receipt Date: 20111003
  Transmission Date: 20120403
  Serious: Yes (Life-Threatening, Hospitalization, Other)
  Sender: FDA-Public Use
  Company Number: FR-PFIZER INC-2011234641

PATIENT
  Age: 20 Year
  Sex: Female

DRUGS (1)
  1. NORDETTE-21 [Suspect]
     Indication: CONTRACEPTION

REACTIONS (5)
  - MEMORY IMPAIRMENT [None]
  - MUSCULOSKELETAL STIFFNESS [None]
  - CEREBROVASCULAR ACCIDENT [None]
  - HYDROCEPHALUS [None]
  - ECCHYMOSIS [None]
